FAERS Safety Report 15322711 (Version 2)
Quarter: 2018Q4

REPORT INFORMATION
  Report Type: Spontaneous
  Country: US (occurrence: US)
  Receive Date: 20180827
  Receipt Date: 20181029
  Transmission Date: 20190204
  Serious: Yes (Other)
  Sender: FDA-Public Use
  Company Number: US-GLAXOSMITHKLINE-US2018151990

PATIENT
  Age: 47 Year
  Sex: Female

DRUGS (1)
  1. ADVAIR DISKUS [Suspect]
     Active Substance: FLUTICASONE PROPIONATE\SALMETEROL XINAFOATE
     Indication: BRONCHIECTASIS
     Dosage: 1 PUFF(S), BID
     Dates: start: 2016

REACTIONS (5)
  - Pneumonia [Recovered/Resolved]
  - Underdose [Unknown]
  - Product use in unapproved indication [Unknown]
  - Dyspnoea [Unknown]
  - Product complaint [Unknown]

NARRATIVE: CASE EVENT DATE: 2016
